FAERS Safety Report 6154280-5 (Version None)
Quarter: 2009Q2

REPORT INFORMATION
  Report Type: 
  Country: None (occurrence: None)
  Receive Date: 20090414
  Receipt Date: 20090408
  Transmission Date: 20091009
  Serious: Yes (Other)
  Sender: FDA-Public Use
  Company Number: PHHY2009JP12082

PATIENT
  Age: 35 Year
  Sex: Female

DRUGS (6)
  1. METHERGINE [Suspect]
  2. SIVELESTAT [Concomitant]
  3. METHYLPREDNISOLONE 4MG TAB [Concomitant]
  4. OXYGEN [Concomitant]
  5. CARBAZOCHROME SODIUM SULFONATE [Concomitant]
  6. TRANEXAMIC ACID [Concomitant]

REACTIONS (9)
  - BRAIN NATRIURETIC PEPTIDE INCREASED [None]
  - BRONCHOALVEOLAR LAVAGE [None]
  - FIBRIN D DIMER INCREASED [None]
  - HYPOXIA [None]
  - LUNG DISORDER [None]
  - LUNG INFILTRATION [None]
  - PULMONARY ALVEOLAR HAEMORRHAGE [None]
  - PULMONARY OEDEMA [None]
  - RALES [None]
